FAERS Safety Report 6043979-7 (Version None)
Quarter: 2009Q1

REPORT INFORMATION
  Report Type: 
  Country: None (occurrence: None)
  Receive Date: 20090120
  Receipt Date: 20090115
  Transmission Date: 20090719
  Serious: Yes (Death)
  Sender: FDA-Public Use
  Company Number: US-BRISTOL-MYERS SQUIBB COMPANY-14472690

PATIENT
  Age: 44 Year
  Sex: Female

DRUGS (13)
  1. BUSPIRONE HCL [Suspect]
     Route: 048
  2. TRAZODONE HCL [Suspect]
     Route: 048
  3. DULOXETINE HCL [Suspect]
     Route: 048
  4. ETHANOL [Suspect]
     Route: 048
  5. LAMOTRIGINE [Suspect]
     Route: 048
  6. HYDROXYZINE [Suspect]
     Route: 048
  7. ZIPRASIDONE [Suspect]
     Route: 048
  8. CHLORPROMAZINE [Suspect]
     Route: 048
  9. PENICILLIN [Suspect]
     Route: 048
  10. CHLORDIAZEPOXIDE [Suspect]
     Route: 048
  11. BUPROPION [Suspect]
     Route: 048
  12. THYROID TAB [Suspect]
     Route: 048
  13. CYPROHEPTADINE [Suspect]
     Route: 048

REACTIONS (1)
  - COMPLETED SUICIDE [None]
